FAERS Safety Report 4840792-0 (Version None)
Quarter: 2005Q4

REPORT INFORMATION
  Report Type: 
  Country: None (occurrence: None)
  Receive Date: 20051130
  Receipt Date: 20041115
  Transmission Date: 20060501
  Serious: No
  Sender: FDA-Public Use
  Company Number: US-BRISTOL-MYERS SQUIBB COMPANY-12765624

PATIENT
  Age: 66 Year
  Sex: Female
  Weight: 73 kg

DRUGS (2)
  1. AVALIDE [Suspect]
     Route: 048
     Dates: start: 20040101
  2. LEVOTHROID [Concomitant]

REACTIONS (2)
  - GENERALISED OEDEMA [None]
  - HEADACHE [None]
